FAERS Safety Report 6466602-6 (Version None)
Quarter: 2009Q4

REPORT INFORMATION
  Report Type: 
  Country: None (occurrence: None)
  Receive Date: 20091201
  Receipt Date: 20091201
  Transmission Date: 20100525
  Serious: No
  Sender: FDA-Public Use
  Company Number: None

PATIENT
  Sex: Female
  Weight: 81.6475 kg

DRUGS (3)
  1. ZICAM ORAL MIST - MOUTH SPRAY [Suspect]
     Dosage: BID 2 DOSES
     Dates: start: 20091104, end: 20091104
  2. ZICAM ORAL MIST-MOUT SPRAY [Suspect]
     Dosage: QD 1 DOSE
     Dates: start: 20091106, end: 20091106
  3. IBUPROFEN [Concomitant]

REACTIONS (2)
  - AGEUSIA [None]
  - DYSGEUSIA [None]
